FAERS Safety Report 4899353-X (Version None)
Quarter: 2006Q1

REPORT INFORMATION
  Report Type: 
  Country: None (occurrence: None)
  Receive Date: 20060106
  Receipt Date: 20051130
  Transmission Date: 20060701
  Serious: No
  Sender: FDA-Public Use
  Company Number: 200511508BWH

PATIENT
  Age: 75 Year
  Sex: Male
  Weight: 72.5755 kg

DRUGS (7)
  1. LEVITRA [Suspect]
     Indication: ERECTILE DYSFUNCTION
     Dosage: 10 MG, OW, ORAL
     Route: 048
     Dates: start: 20050501
  2. ALCOHOL [Suspect]
  3. DIOVAN [Concomitant]
  4. COREG [Concomitant]
  5. LIPITOR [Concomitant]
  6. WARFARIN SODIUM [Concomitant]
  7. NIACIN [Concomitant]

REACTIONS (3)
  - EJACULATION DISORDER [None]
  - EJACULATION FAILURE [None]
  - ERECTILE DYSFUNCTION [None]
